FAERS Safety Report 9444044 (Version 2)
Quarter: 2013Q3

REPORT INFORMATION
  Report Type: Report from Study
  Country: US (occurrence: US)
  Receive Date: 20130807
  Receipt Date: 20130814
  Transmission Date: 20140515
  Serious: Yes (Hospitalization)
  Sender: FDA-Public Use
  Company Number: US-ROCHE-1255255

PATIENT
  Age: 57 Year
  Sex: Female

DRUGS (5)
  1. PEG-INTERFERON ALFA 2A [Suspect]
     Indication: CHRONIC HEPATITIS C
     Dosage: DATE OF MOST RECENT DOSE OF PEG-INTERFERON ALFA 2A: 30/APR/2013
     Route: 065
     Dates: start: 20121212
  2. RIBAVIRIN [Suspect]
     Indication: CHRONIC HEPATITIS C
     Dosage: DATE OF MOST RECENT DOSE OF RIBAVIRIN: 30/APR/2013
     Route: 065
     Dates: start: 20121212
  3. BOCEPREVIR [Suspect]
     Indication: CHRONIC HEPATITIS C
     Dosage: DATE OF MOST RECENT DOSE OF TELAPREVIR: 30/APR/2013
     Route: 065
     Dates: start: 20130108
  4. NEUPOGEN [Concomitant]
  5. EPOETIN ALFA [Concomitant]

REACTIONS (3)
  - Eye pruritus [Not Recovered/Not Resolved]
  - Oedema peripheral [Not Recovered/Not Resolved]
  - Rash pruritic [Recovered/Resolved]
